FAERS Safety Report 9272735 (Version 1)
Quarter: 2013Q2

REPORT INFORMATION
  Report Type: Spontaneous
  Country: US (occurrence: US)
  Receive Date: 20130506
  Receipt Date: 20130506
  Transmission Date: 20140414
  Serious: No
  Sender: FDA-Public Use
  Company Number: US-ASTRAZENECA-2012SE44954

PATIENT
  Age: 79 Year
  Sex: Female

DRUGS (3)
  1. PRILOSEC OTC [Suspect]
     Indication: ULCER
     Route: 048
     Dates: start: 200810
  2. ASPIRIN [Concomitant]
     Indication: PAIN
  3. IBUPROFEN [Concomitant]

REACTIONS (2)
  - Condition aggravated [Unknown]
  - Drug ineffective [Unknown]
